FAERS Safety Report 19629874 (Version 7)
Quarter: 2023Q1

REPORT INFORMATION
  Report Type: Spontaneous
  Country: CA (occurrence: None)
  Receive Date: 20210728
  Receipt Date: 20230215
  Transmission Date: 20230417
  Serious: Yes (Hospitalization)
  Sender: FDA-Public Use
  Company Number: 2021A600761

PATIENT
  Age: 78 Year
  Sex: Female

DRUGS (17)
  1. ASTRAZENECA COVID-19 VACCINE [Suspect]
     Active Substance: AZD-1222
     Indication: Product used for unknown indication
     Route: 030
  2. CALQUENCE [Suspect]
     Active Substance: ACALABRUTINIB
     Indication: Chronic lymphocytic leukaemia
     Route: 048
     Dates: start: 20210623, end: 20210716
  3. CALQUENCE [Suspect]
     Active Substance: ACALABRUTINIB
     Indication: Chronic lymphocytic leukaemia
     Route: 048
     Dates: start: 20210716
  4. OMEPRAZOLE [Suspect]
     Active Substance: OMEPRAZOLE
     Route: 048
  5. CEPHALEXIN [Concomitant]
     Active Substance: CEPHALEXIN
     Dosage: 500MG QID FOR 5 DAYS
     Route: 065
  6. IMODIUM [Concomitant]
     Active Substance: LOPERAMIDE HYDROCHLORIDE
     Dosage: UNKNOWN
     Route: 065
  7. CITALOPRAM [Concomitant]
     Active Substance: CITALOPRAM HYDROBROMIDE
     Dosage: 20 MG ONCE DAILY
     Route: 065
  8. DOMPERIDONE [Concomitant]
     Active Substance: DOMPERIDONE
     Dosage: 10 MG THREE TIMES DAILY BEFORE MEALS
     Route: 065
  9. RANITIDINE [Concomitant]
     Active Substance: RANITIDINE
     Dosage: 150 MG TWICE DAILY WHEN NEEDED
     Route: 065
  10. CODEINE [Concomitant]
     Active Substance: CODEINE
     Dosage: 30 MG 1-2 TABS EVERY 4 HOURS WHEN NEEDED
     Route: 065
  11. POLYSACCHARIDE IRON [Concomitant]
     Dosage: 150 MG ONCE DAILY
     Route: 065
  12. ALBUTEROL [Concomitant]
     Active Substance: ALBUTEROL
     Dosage: 100 MCG 1-2 PUFFS EVERY 4 HOURS WHEN NEEDED
     Route: 065
  13. AMLODIPINE [Concomitant]
     Active Substance: AMLODIPINE BESYLATE
     Dosage: 2.5 MG 3 TABS ONCE DAILY
     Route: 065
  14. ASPIRIN [Concomitant]
     Active Substance: ASPIRIN
     Dosage: 81 MG ONCE DAILY
     Route: 065
  15. METOPROLOL [Concomitant]
     Active Substance: METOPROLOL
     Dosage: 25 MG TWICE DAILY
     Route: 065
  16. ISOSORBIDE MONONITRATE [Concomitant]
     Active Substance: ISOSORBIDE MONONITRATE
     Dosage: 60 MG ONCE DAILY
     Route: 065
  17. UMECLIDINIUM [Concomitant]
     Active Substance: UMECLIDINIUM
     Dosage: 1 PUFF ONCE DAILY
     Route: 065

REACTIONS (12)
  - Drug interaction [Not Recovered/Not Resolved]
  - Abdominal discomfort [Not Recovered/Not Resolved]
  - Vomiting [Not Recovered/Not Resolved]
  - Diarrhoea [Not Recovered/Not Resolved]
  - Nausea [Not Recovered/Not Resolved]
  - Gastrooesophageal reflux disease [Not Recovered/Not Resolved]
  - Dyspepsia [Not Recovered/Not Resolved]
  - Gastroenteritis bacterial [Unknown]
  - Localised infection [Not Recovered/Not Resolved]
  - Injection site infection [Unknown]
  - Illness [Not Recovered/Not Resolved]
  - Off label use [Unknown]
